FAERS Safety Report 4881852-8 (Version None)
Quarter: 2006Q1

REPORT INFORMATION
  Report Type: 
  Country: None (occurrence: None)
  Receive Date: 20060112
  Receipt Date: 20060104
  Transmission Date: 20060701
  Serious: Yes (Disabling, Other)
  Sender: FDA-Public Use
  Company Number: 2005135483

PATIENT
  Age: 60 Year
  Sex: Male

DRUGS (6)
  1. VIAGRA [Suspect]
     Indication: ILL-DEFINED DISORDER
     Dosage: (PRN)
     Dates: start: 20040804
  2. CONCERTA [Concomitant]
  3. RITALIN [Concomitant]
  4. LIPITOR [Concomitant]
  5. PREDNISONE [Concomitant]
  6. ASPIRIN [Concomitant]

REACTIONS (8)
  - AMAUROSIS FUGAX [None]
  - BLOOD PRESSURE INCREASED [None]
  - EYE PAIN [None]
  - HEADACHE [None]
  - OPTIC ATROPHY [None]
  - OPTIC ISCHAEMIC NEUROPATHY [None]
  - OPTIC NEURITIS [None]
  - PANIC ATTACK [None]
